FAERS Safety Report 8481748-9 (Version None)
Quarter: 2012Q3

REPORT INFORMATION
  Report Type: 
  Country: None (occurrence: None)
  Receive Date: 20120702
  Receipt Date: 20120618
  Transmission Date: 20120928
  Serious: Yes (Other)
  Sender: FDA-Public Use
  Company Number: NO-ROCHE-1082106

PATIENT
  Sex: Male

DRUGS (4)
  1. MABTHERA [Suspect]
     Dosage: GIVEN AFTER 3 MONTHS FROM THE EVENT
  2. METHOTREXATE [Suspect]
     Indication: GRANULOMA
  3. METHOTREXATE [Suspect]
     Indication: VASCULITIS
  4. MABTHERA [Suspect]
     Indication: RHEUMATOID ARTHRITIS
     Dates: start: 20080201

REACTIONS (2)
  - DIARRHOEA [None]
  - NEUTROPENIA [None]
